FAERS Safety Report 7043667-4 (Version None)
Quarter: 2010Q4

REPORT INFORMATION
  Report Type: 
  Country: None (occurrence: None)
  Receive Date: 20101008
  Receipt Date: 20100928
  Transmission Date: 20110411
  Serious: Yes (Death, Other)
  Sender: FDA-Public Use
  Company Number: 1000016585

PATIENT
  Age: 81 Year
  Sex: Female

DRUGS (19)
  1. NEBIVOLOL HCL [Suspect]
     Dosage: ORAL
     Route: 048
     Dates: start: 20100613, end: 20100626
  2. CALCIPARINE [Suspect]
     Dosage: 24000 UNITS (24000 UNITS,1 IN 1 HR),INTRAVENOUS (NOT OTHERWISE SPECIFIED)
     Route: 042
     Dates: start: 20100604, end: 20100626
  3. ESIDRIX [Suspect]
     Dosage: ORAL
     Route: 048
     Dates: start: 20100611, end: 20100626
  4. AMOXICILLIN [Suspect]
     Indication: INTERNATIONAL NORMALISED RATIO INCREASED
     Dosage: 3 GRAMS (3 GM,1 IN 1 D),ORAL
     Route: 048
     Dates: start: 20100604, end: 20100616
  5. ISOSORBIDE DINITRATE [Suspect]
     Dosage: 24 MG (24 MG,1 IN 1 D),INTRAVENOUS (NOT OTHERWISE SPECIFIED)
     Route: 042
     Dates: start: 20100611, end: 20100615
  6. CORDARONE [Suspect]
     Dosage: 200 MG (200 MG,1 IN 1 D),ORAL
     Route: 048
     Dates: start: 20100604, end: 20100616
  7. LOXEN (NICARDIPINE HYDROCHLORIDE) (NICARDIPINE HYDROCHLORIDE) [Concomitant]
  8. EUPRESSYL (URAPIDIL) (URAPIDIL) [Concomitant]
  9. LASILIX (FUROSEMIDE) (FUROSEMIDE) [Concomitant]
  10. ARIMIDEX (ANASTROZOLE) (ANASTROZOLE) [Concomitant]
  11. PREVISCAN (FLUINDIONE) (FLUINDIONE) [Concomitant]
  12. LANTUS (INSULIN GLARGINE) (INSULIN GLARGINE) [Concomitant]
  13. LEVOTHYROXINE SODIUM [Concomitant]
  14. INEXIUM (ESOMEPRAZOLE MAGNESIUM) ESOMEPRAZOLE MAGNESIUM) [Concomitant]
  15. ALDACTONE [Concomitant]
  16. ATARAX (ALPRAZOLAM) (ALPRAZOLAM) [Concomitant]
  17. KARDEGIC (ACETYLSALICYLATE LYSINE) (ACETYLSALICYLATE LYSINE) [Concomitant]
  18. ESCITALOPRAM OXALATE [Concomitant]
  19. COTAREG (HYDROCHLOROTHIAZIDE, VALSARTAN) (HYDROCHLOROTHIAZIDE, VALSART [Concomitant]

REACTIONS (3)
  - ACUTE RESPIRATORY DISTRESS SYNDROME [None]
  - GENERAL PHYSICAL HEALTH DETERIORATION [None]
  - HEPARIN-INDUCED THROMBOCYTOPENIA [None]
